FAERS Safety Report 14269111 (Version 1)
Quarter: 2017Q4

REPORT INFORMATION
  Report Type: Spontaneous
  Country: US (occurrence: US)
  Receive Date: 20171211
  Receipt Date: 20171211
  Transmission Date: 20180321
  Serious: Yes (Death)
  Sender: FDA-Public Use
  Company Number: US-UNITED THERAPEUTICS-UNT-2017-016706

PATIENT
  Age: 61 Year
  Sex: Female
  Weight: 69.39 kg

DRUGS (3)
  1. OPSUMIT [Concomitant]
     Active Substance: MACITENTAN
     Indication: PRODUCT USED FOR UNKNOWN INDICATION
     Route: 065
  2. SILDENAFIL CITRATE. [Concomitant]
     Active Substance: SILDENAFIL CITRATE
     Indication: PRODUCT USED FOR UNKNOWN INDICATION
     Dosage: UNK
     Route: 065
  3. REMODULIN [Suspect]
     Active Substance: TREPROSTINIL
     Indication: PULMONARY ARTERIAL HYPERTENSION
     Dosage: 0.045 ?G/KG, CONTINUING
     Route: 058
     Dates: start: 20161201

REACTIONS (5)
  - Infusion site pain [Unknown]
  - Infusion site haemorrhage [Unknown]
  - Infusion site discharge [Unknown]
  - Death [Fatal]
  - Infusion site discolouration [Unknown]

NARRATIVE: CASE EVENT DATE: 2017
